FAERS Safety Report 14032093 (Version 3)
Quarter: 2020Q1

REPORT INFORMATION
  Report Type: Report from Study
  Country: AU (occurrence: AU)
  Receive Date: 20171002
  Receipt Date: 20200311
  Transmission Date: 20200409
  Serious: Yes (Hospitalization)
  Sender: FDA-Public Use
  Company Number: AU-PFIZER INC-2017279980

PATIENT
  Age: 61 Year
  Sex: Male
  Weight: 116 kg

DRUGS (2)
  1. JANUMET [Concomitant]
     Active Substance: METFORMIN HYDROCHLORIDE\SITAGLIPTIN PHOSPHATE
     Indication: TYPE 2 DIABETES MELLITUS
     Dosage: (SITAGLIPTIN PHOSPHATE MONOHYDRATE 50MG/METFORMIN HYDROCHLORIDE 500MG), 1 TABLET DAILY
     Route: 048
     Dates: start: 201609
  2. SUTENT [Suspect]
     Active Substance: SUNITINIB MALATE
     Indication: RENAL CELL CARCINOMA
     Dosage: 50 MG, 1 CAPSULE DAILY
     Route: 048
     Dates: start: 20170405, end: 20170419

REACTIONS (1)
  - Skin ulcer [Recovered/Resolved with Sequelae]

NARRATIVE: CASE EVENT DATE: 20170623
